FAERS Safety Report 20523322 (Version 2)
Quarter: 2022Q1

REPORT INFORMATION
  Report Type: Spontaneous
  Country: US (occurrence: US)
  Receive Date: 20220227
  Receipt Date: 20220330
  Transmission Date: 20220423
  Serious: No
  Sender: FDA-Public Use
  Company Number: US-JNJFOC-20220254356

PATIENT
  Sex: Male
  Weight: 68.2 kg

DRUGS (3)
  1. OPSUMIT [Suspect]
     Active Substance: MACITENTAN
     Indication: Pulmonary arterial hypertension
     Dosage: OPSUMIT 10MG ORALLY DAILY
     Route: 048
  2. UPTRAVI [Suspect]
     Active Substance: SELEXIPAG
     Indication: Pulmonary arterial hypertension
     Dosage: UPTRAVI 1000 MCG ORALLY 2 TIMES DAILY
     Route: 048
  3. TADALAFIL [Concomitant]
     Active Substance: TADALAFIL

REACTIONS (7)
  - Feeling abnormal [Unknown]
  - Malaise [Not Recovered/Not Resolved]
  - Product dose omission issue [Unknown]
  - Dyspnoea [Unknown]
  - Palpitations [Unknown]
  - Headache [Unknown]
  - Condition aggravated [Unknown]
